FAERS Safety Report 4895777-5 (Version None)
Quarter: 2005Q4

REPORT INFORMATION
  Report Type: 
  Country: None (occurrence: None)
  Receive Date: 20051220
  Receipt Date: 20051019
  Transmission Date: 20060501
  Serious: No
  Sender: FDA-Public Use
  Company Number: 421949

PATIENT
  Age: 47 Year
  Sex: Male

DRUGS (2)
  1. BONIVA [Suspect]
     Indication: OSTEOPOROSIS
     Dosage: 150 MG PER MONTH ORAL
     Route: 048
     Dates: start: 20051018, end: 20051018
  2. PHENOBARBITAL TAB [Concomitant]

REACTIONS (3)
  - DRUG ADMINISTRATION ERROR [None]
  - MOUTH ULCERATION [None]
  - OESOPHAGEAL ULCER [None]
